FAERS Safety Report 18851961 (Version 1)
Quarter: 2021Q1

REPORT INFORMATION
  Report Type: Spontaneous
  Country: IN (occurrence: IN)
  Receive Date: 20210205
  Receipt Date: 20210205
  Transmission Date: 20210420
  Serious: Yes (Hospitalization)
  Sender: FDA-Public Use
  Company Number: IN-MYLANLABS-2021M1007366

PATIENT
  Age: 24 Year
  Sex: Female

DRUGS (4)
  1. ACETYLCYSTEINE. [Suspect]
     Active Substance: ACETYLCYSTEINE
     Indication: JAUNDICE
     Route: 065
  2. CHOLESTYRAMINE. [Suspect]
     Active Substance: CHOLESTYRAMINE
     Indication: JAUNDICE
     Route: 065
  3. NORETHISTERONE ACETATE [Concomitant]
     Active Substance: NORETHINDRONE ACETATE
     Indication: MENORRHAGIA
     Dosage: 5 MILLIGRAM, QD
     Route: 065
  4. URSODEOXYCHOLIC ACID [Suspect]
     Active Substance: URSODIOL
     Indication: JAUNDICE
     Route: 065

REACTIONS (1)
  - Drug ineffective [Unknown]
